FAERS Safety Report 8855060 (Version 5)
Quarter: 2013Q1

REPORT INFORMATION
  Report Type: Spontaneous
  Country: US (occurrence: US)
  Receive Date: 20121023
  Receipt Date: 20130117
  Transmission Date: 20140127
  Serious: Yes (Other)
  Sender: FDA-Public Use
  Company Number: US-009507513-1210USA005001

PATIENT
  Age: 58 None
  Sex: Female

DRUGS (3)
  1. PEGINTRON [Suspect]
     Indication: HEPATITIS C
     Dosage: UNK
     Dates: start: 20120925
  2. RIBAVIRIN [Suspect]
     Indication: HEPATITIS C
     Dosage: UNK
     Route: 048
     Dates: start: 20120925
  3. VICTRELIS [Suspect]
     Indication: HEPATITIS C
     Dosage: UNK
     Route: 048
     Dates: start: 20121023

REACTIONS (23)
  - Aggression [Unknown]
  - Dehydration [Unknown]
  - Vomiting [Unknown]
  - Back pain [Unknown]
  - Memory impairment [Unknown]
  - Decreased appetite [Unknown]
  - Dysgeusia [Unknown]
  - Weight decreased [Unknown]
  - Diarrhoea [Unknown]
  - Nausea [Unknown]
  - Memory impairment [Unknown]
  - Nausea [Unknown]
  - Dysgeusia [Unknown]
  - Musculoskeletal disorder [Unknown]
  - Arthropathy [Unknown]
  - Asthenia [Unknown]
  - Dry skin [Unknown]
  - Alopecia [Unknown]
  - Dysgeusia [Unknown]
  - Gait disturbance [Unknown]
  - Depressed level of consciousness [Unknown]
  - Confusional state [Unknown]
  - Pain [Not Recovered/Not Resolved]
